FAERS Safety Report 9452594 (Version 1)
Quarter: 2013Q3

REPORT INFORMATION
  Report Type: Spontaneous
  Country: US (occurrence: None)
  Receive Date: 20130808
  Receipt Date: 20130808
  Transmission Date: 20140515
  Serious: Yes (Other)
  Sender: FDA-Public Use
  Company Number: None

PATIENT
  Age: 55 Year
  Sex: Female
  Weight: 156.8 kg

DRUGS (1)
  1. ACTEMRA [Suspect]
     Indication: RHEUMATOID ARTHRITIS
     Dosage: 8MG/KG; Q 4 WK?6/7/13, 7/5/13, 8/2/13
     Route: 042
     Dates: start: 20120607, end: 20130705

REACTIONS (3)
  - White blood cell count decreased [None]
  - Platelet count decreased [None]
  - Overdose [None]
